FAERS Safety Report 20819769 (Version 2)
Quarter: 2022Q2

REPORT INFORMATION
  Report Type: Spontaneous
  Country: VN (occurrence: VN)
  Receive Date: 20220512
  Receipt Date: 20220519
  Transmission Date: 20220721
  Serious: Yes (Life-Threatening, Other)
  Sender: FDA-Public Use
  Company Number: VN-JNJFOC-20220515595

PATIENT
  Sex: Male

DRUGS (1)
  1. REMICADE [Suspect]
     Active Substance: INFLIXIMAB
     Indication: Ankylosing spondylitis
     Route: 042
     Dates: start: 20220506, end: 20220506

REACTIONS (5)
  - Paralysis [Unknown]
  - Angina pectoris [Unknown]
  - Anaphylactic shock [Recovering/Resolving]
  - Dyspnoea [Unknown]
  - Flushing [Unknown]

NARRATIVE: CASE EVENT DATE: 20220506
